FAERS Safety Report 10580052 (Version 1)
Quarter: 2014Q4

REPORT INFORMATION
  Report Type: Spontaneous
  Country: FR (occurrence: FR)
  Receive Date: 20141112
  Receipt Date: 20141112
  Transmission Date: 20150529
  Serious: Yes (Hospitalization)
  Sender: FDA-Public Use
  Company Number: FR-PFIZER INC-2014309614

PATIENT
  Age: 23 Year
  Sex: Female

DRUGS (2)
  1. TAZOCILLINE [Suspect]
     Active Substance: PIPERACILLIN SODIUM\TAZOBACTAM SODIUM
     Dosage: 4 G, 3X/DAY
     Route: 042
     Dates: start: 20140919, end: 20141002
  2. CIFLOX [Suspect]
     Active Substance: CIPROFLOXACIN
     Dosage: 500 MG, 3X/DAY
     Route: 048
     Dates: start: 20140919, end: 20141002

REACTIONS (3)
  - Febrile neutropenia [Unknown]
  - Tendon pain [Unknown]
  - Dysaesthesia [Unknown]

NARRATIVE: CASE EVENT DATE: 20141002
